FAERS Safety Report 10549192 (Version 3)
Quarter: 2014Q4

REPORT INFORMATION
  Report Type: Report from Study
  Country: US (occurrence: US)
  Receive Date: 20141028
  Receipt Date: 20141111
  Transmission Date: 20150529
  Serious: Yes (Hospitalization)
  Sender: FDA-Public Use
  Company Number: US-009507513-1407USA001024

PATIENT
  Age: 88 Year
  Sex: Male

DRUGS (8)
  1. FUROSEMIDE. [Concomitant]
     Active Substance: FUROSEMIDE
     Indication: HYPERTENSION
     Dosage: 20 MG, QD
     Route: 048
     Dates: start: 20120417
  2. LEVOTHYROXINE SODIUM. [Concomitant]
     Active Substance: LEVOTHYROXINE SODIUM
     Indication: HYPOTHYROIDISM
     Dosage: 88 MICROGRAM, QD
     Route: 048
     Dates: start: 20120417, end: 20141013
  3. FERROUS SULFATE [Concomitant]
     Active Substance: FERROUS SULFATE\FERROUS SULFATE, DRIED
     Indication: ROUTINE HEALTH MAINTENANCE
     Dosage: 324 MG DAILY, QD
     Route: 048
     Dates: start: 20140117
  4. METAMUCIL [Concomitant]
     Active Substance: PLANTAGO SEED
     Indication: ROUTINE HEALTH MAINTENANCE
     Dosage: 5 ML, QD
     Route: 048
     Dates: start: 20140207
  5. DILTIAZEM HYDROCHLORIDE. [Concomitant]
     Active Substance: DILTIAZEM HYDROCHLORIDE
     Indication: HYPERTENSION
     Dosage: 120 MG DAILY, QD
     Route: 048
     Dates: start: 20120417
  6. KEPPRA [Concomitant]
     Active Substance: LEVETIRACETAM
     Indication: SEIZURE
     Dosage: 500 MG, BID (START DATE REPORTED AS 12-DEC-2014)
     Route: 048
     Dates: start: 20131212
  7. PEMBROLIZUMAB. [Suspect]
     Active Substance: PEMBROLIZUMAB
     Indication: METASTATIC MALIGNANT MELANOMA
     Dosage: 2 MG/KG, Q3W
     Route: 042
     Dates: start: 20140604
  8. ATENOLOL. [Concomitant]
     Active Substance: ATENOLOL
     Indication: ATRIAL FIBRILLATION
     Dosage: 25 MG DAILY, QD
     Route: 048
     Dates: start: 20120417

REACTIONS (2)
  - Syncope [Recovered/Resolved with Sequelae]
  - Hypophysitis [Recovered/Resolved with Sequelae]

NARRATIVE: CASE EVENT DATE: 20140627
